FAERS Safety Report 8147907 (Version 3)
Quarter: 2012Q4

REPORT INFORMATION
  Report Type: 
  Country: US (occurrence: US)
  Receive Date: 20110922
  Receipt Date: 20120917
  Transmission Date: 20130627
  Serious: No
  Sender: FDA-Public Use
  Company Number: US-ASTRAZENECA-2010SE35345

PATIENT
  Age: 53 Year
  Sex: Female

DRUGS (52)
  1. SEROQUEL XR [Suspect]
     Indication: BIPOLAR I DISORDER
     Route: 048
     Dates: start: 20100628, end: 20100707
  2. SYMBICORT [Suspect]
     Dosage: 160-4.5 MCG, 2 INHALATIONS TWO TIMES A DAY
     Route: 055
     Dates: start: 20100218
  3. NEXIUM [Suspect]
     Route: 048
  4. NEXIUM [Suspect]
     Route: 048
     Dates: start: 20110321
  5. NEXIUM [Suspect]
     Dosage: 1 EVERY FOUR-SIX HOURS, AS NEEDED
     Route: 048
     Dates: start: 20100802
  6. CRESTOR [Suspect]
     Route: 048
  7. CRESTOR [Suspect]
     Route: 048
     Dates: start: 20100728
  8. DEPAKOTE [Concomitant]
     Route: 048
  9. LOVAZA [Concomitant]
     Route: 048
     Dates: start: 20100218
  10. MICARDIS [Concomitant]
     Indication: HYPERTENSION
     Route: 048
     Dates: start: 20120216
  11. MICARDIS [Concomitant]
     Indication: HYPERTENSION
     Route: 048
     Dates: start: 20120216
  12. XANAX [Concomitant]
     Indication: ANXIETY
     Route: 048
  13. TRAMADOL [Concomitant]
     Route: 048
  14. ASPIRIN [Concomitant]
     Route: 048
     Dates: start: 20100218
  15. HYDROCODONE [Concomitant]
     Dosage: 10/500 MG Q3D
     Route: 048
  16. SYNTHROID [Concomitant]
     Route: 048
     Dates: start: 20110225
  17. SINGULAIR [Concomitant]
     Indication: ASTHMA
     Route: 048
  18. LORATADINE [Concomitant]
     Indication: HYPERSENSITIVITY
     Route: 048
     Dates: start: 20100316
  19. GLYBURIDE [Concomitant]
     Indication: DIABETES MELLITUS
     Route: 048
  20. TEMAZEPAM [Concomitant]
     Route: 048
     Dates: start: 20120411
  21. METOLAZONE [Concomitant]
     Indication: SWELLING
     Dosage: 5 MG, AS NEEDED; 30 MINUTES PRIOR TO FUROSEMIDE
     Route: 048
     Dates: start: 20120412
  22. GENTAMICIN SULFATE [Concomitant]
     Dosage: 1 CREAM, TWICE A DAY, AS NEEDED
     Route: 065
     Dates: start: 20120306
  23. ALPRAZOLAM [Concomitant]
     Dosage: 1/2-1 EVERY FOUR-SIX HOURS, AS NEEDED
     Route: 048
     Dates: start: 20120216
  24. BYSTOLIC [Concomitant]
     Route: 048
     Dates: start: 20120216
  25. PROMETHAZINE HCL [Concomitant]
     Indication: NAUSEA
     Dosage: EVERY FOUR-SIX HOURS, AS NEEDED
     Route: 048
     Dates: start: 20120124
  26. PROCARDIA XL [Concomitant]
     Indication: BLOOD PRESSURE ABNORMAL
     Route: 048
     Dates: start: 20120123
  27. DEPAKOTE ER [Concomitant]
     Route: 048
     Dates: start: 20111207
  28. DEPAKOTE ER [Concomitant]
     Route: 048
     Dates: start: 20111207
  29. ZANAFLEX [Concomitant]
     Indication: MUSCLE SPASMS
     Dosage: 2 EVERY 4-6 HOURS, AS NEEDED
     Route: 048
     Dates: start: 20111205
  30. FLUCONAZOLE [Concomitant]
     Indication: FUNGAL INFECTION
     Route: 048
     Dates: start: 20111010
  31. DEXILANT [Concomitant]
     Indication: DYSPEPSIA
     Route: 048
     Dates: start: 20110912
  32. NITROSTAT [Concomitant]
     Indication: CHEST PAIN
     Dosage: EVERY 5 MINUTES
     Route: 060
     Dates: start: 20110906
  33. GLIMEPIRIDE [Concomitant]
     Route: 048
     Dates: start: 20110906
  34. TRAMADOL HCL [Concomitant]
     Dosage: 2 TABLETS EVERY FOUR-SIX HOURS, AS NEEDED
     Route: 048
     Dates: start: 20110906
  35. TRAMADOL HCL [Concomitant]
     Dosage: 1 EVERY FOUR-SIX HOURS, AS NEEDED
     Route: 048
     Dates: start: 20110225
  36. KLOR-CON M20 [Concomitant]
     Dosage: 20 MEQ, 1 TABLET DAILY
     Route: 048
     Dates: start: 20110906
  37. HYDROCODONE-ACETAMINOPHEN [Concomitant]
     Dosage: 10-500 MG; 1-2 EVERY FOUR-SIX HOURS, AS NEEDED
     Route: 048
     Dates: start: 20110225
  38. RANEXA [Concomitant]
     Indication: CARDIAC DISORDER
     Route: 048
  39. EFFIENT [Concomitant]
     Indication: ISCHAEMIC HEART DISEASE PROPHYLAXIS
     Route: 048
  40. PROVIGIL [Concomitant]
     Dosage: 1/2 TO ONE DAILY
     Route: 048
     Dates: start: 20100206
  41. FOLIC ACID [Concomitant]
     Route: 048
     Dates: start: 20100218
  42. SELENIUM [Concomitant]
     Route: 048
     Dates: start: 20100218
  43. ALBUTEROL SULFATE [Concomitant]
     Dosage: 1 INHALATION EVERY FOUR-SIX HOURS, AS NEEDED
     Route: 055
     Dates: start: 20100316
  44. IBUPROFEN [Concomitant]
     Route: 048
     Dates: start: 20100316
  45. IBUPROFEN [Concomitant]
     Route: 048
     Dates: start: 20100316
  46. LYRICA [Concomitant]
     Indication: FIBROMYALGIA
     Route: 048
     Dates: start: 20100903
  47. LIDODERM [Concomitant]
     Dosage: 1-3 TO PAINFUL SKIN AREA, AS NEEDED
     Route: 065
     Dates: start: 20101021
  48. KLOR-CON M10 [Concomitant]
     Indication: MUSCLE SPASMS
     Dosage: 10MEQ,1-2 DAILY
     Route: 048
     Dates: start: 20110315
  49. ULTRAM ER [Concomitant]
     Indication: PAIN
     Route: 048
     Dates: start: 20110628
  50. FUROSEMIDE [Concomitant]
     Indication: SWELLING
     Route: 048
     Dates: start: 20110628
  51. FUROSEMIDE [Concomitant]
     Indication: SWELLING
     Route: 048
     Dates: start: 20110628
  52. AMRIX [Concomitant]
     Indication: MUSCLE SPASMS
     Dosage: 15 MG AT EVENING AS NEEDED
     Route: 048
     Dates: start: 20110124

REACTIONS (14)
  - Agitation [Recovered/Resolved]
  - Mania [Recovered/Resolved]
  - Glossitis [Recovered/Resolved]
  - Hypoacusis [Unknown]
  - Swelling [Unknown]
  - Oral pain [Unknown]
  - Tongue disorder [Unknown]
  - Drooling [Unknown]
  - Lethargy [Unknown]
  - Pyrexia [Unknown]
  - Sinusitis [Unknown]
  - Aphonia [Unknown]
  - Abscess drainage [Unknown]
  - Drug hypersensitivity [Unknown]
